FAERS Safety Report 7879289-2 (Version None)
Quarter: 2011Q4

REPORT INFORMATION
  Report Type: 
  Country: None (occurrence: None)
  Receive Date: 20111101
  Receipt Date: 20111021
  Transmission Date: 20120403
  Serious: Yes (Hospitalization)
  Sender: FDA-Public Use
  Company Number: US-BAYER-2011-050587

PATIENT
  Age: 27 Year
  Sex: Female
  Weight: 68.027 kg

DRUGS (13)
  1. ATUSS OS [Concomitant]
     Dosage: UNK UNK, BID
  2. SEASONIQUE [Concomitant]
  3. ANAPROX [Concomitant]
     Indication: ABDOMINAL PAIN
     Dosage: 550 MG, PRN
     Route: 048
  4. CLARITIN [Concomitant]
     Dosage: 10 MG, QD
     Route: 048
  5. TORADOL [Concomitant]
     Dosage: 10 MG, QID
     Route: 048
  6. FLAGYL [Concomitant]
     Dosage: 500 MG, TID
  7. SINGULAIR [Concomitant]
     Indication: HYPERSENSITIVITY
     Dosage: 10 MG, QD
     Route: 048
  8. KAPIDEX [Concomitant]
     Indication: DYSPEPSIA
     Route: 048
  9. YAZ [Suspect]
     Indication: PREMENSTRUAL SYNDROME
     Dosage: UNK
     Dates: start: 20080101, end: 20090101
  10. ATENOLOL [Concomitant]
     Dosage: 25 MG, QD
     Route: 048
  11. FLONASE [Concomitant]
     Dosage: 0.05 MG, UNK
  12. CELEXA [Concomitant]
     Indication: DEPRESSION
     Dosage: 40 MG, QD
  13. WELLBUTRIN [Concomitant]
     Dosage: 150 MG, BID
     Route: 048

REACTIONS (3)
  - CHOLECYSTECTOMY [None]
  - CHOLECYSTITIS CHRONIC [None]
  - PAIN [None]
